FAERS Safety Report 4392798-6 (Version None)
Quarter: 2004Q3

REPORT INFORMATION
  Report Type: 
  Country: None (occurrence: None)
  Receive Date: 20040702
  Receipt Date: 20040316
  Transmission Date: 20050211
  Serious: Yes (Other)
  Sender: FDA-Public Use
  Company Number: 2004UW05019

PATIENT
  Sex: Female

DRUGS (1)
  1. CRESTOR [Suspect]
     Dosage: 5 MG DAILY PO
     Route: 048
     Dates: start: 20031101

REACTIONS (5)
  - ABDOMINAL DISTENSION [None]
  - ARTHRITIS [None]
  - BACK PAIN [None]
  - FLATULENCE [None]
  - NAIL DISORDER [None]
